FAERS Safety Report 18755886 (Version 1)
Quarter: 2021Q1

REPORT INFORMATION
  Report Type: Spontaneous
  Country: US (occurrence: US)
  Receive Date: 20210115
  Receipt Date: 20210115
  Transmission Date: 20210419
  Serious: No
  Sender: FDA-Public Use
  Company Number: None

PATIENT

DRUGS (1)
  1. ALYQ [Suspect]
     Active Substance: TADALAFIL
     Indication: SYSTEMIC SCLEROSIS PULMONARY
     Route: 048
     Dates: start: 201802

REACTIONS (1)
  - Lung transplant [None]
